FAERS Safety Report 5245936-7 (Version None)
Quarter: 2007Q1

REPORT INFORMATION
  Report Type: 
  Country: None (occurrence: None)
  Receive Date: 20070220
  Receipt Date: 20070205
  Transmission Date: 20070707
  Serious: Yes (Hospitalization)
  Sender: FDA-Public Use
  Company Number: TOR 2007-0004

PATIENT
  Sex: Female

DRUGS (2)
  1. FARESTON [Suspect]
     Indication: BREAST CANCER
     Dosage: 120 MG
     Route: 048
     Dates: start: 20050101
  2. MEDROXYPROGESTERONE ACETATE [Concomitant]

REACTIONS (3)
  - ALANINE AMINOTRANSFERASE INCREASED [None]
  - ASPARTATE AMINOTRANSFERASE INCREASED [None]
  - LIVER DISORDER [None]
